FAERS Safety Report 20097550 (Version 4)
Quarter: 2022Q1

REPORT INFORMATION
  Report Type: Report from Study
  Country: BR (occurrence: BR)
  Receive Date: 20211122
  Receipt Date: 20220206
  Transmission Date: 20220423
  Serious: Yes (Death, Hospitalization, Other)
  Sender: FDA-Public Use
  Company Number: BR-NOVARTISPH-NVSC2021BR263570

PATIENT
  Age: 69 Year
  Sex: Female
  Weight: 60 kg

DRUGS (19)
  1. PACLITAXEL [Suspect]
     Active Substance: PACLITAXEL
     Indication: Breast cancer
     Dosage: 80 MG/M2, QW
     Route: 042
     Dates: start: 201708, end: 201710
  2. ANASTROZOLE [Suspect]
     Active Substance: ANASTROZOLE
     Indication: Breast cancer
     Dosage: 1 MG, QD
     Route: 048
     Dates: start: 201710, end: 201902
  3. EVEROLIMUS [Suspect]
     Active Substance: EVEROLIMUS
     Indication: Breast cancer
     Dosage: 1 DF, QD
     Route: 065
     Dates: start: 201902, end: 202001
  4. EVEROLIMUS [Suspect]
     Active Substance: EVEROLIMUS
     Dosage: 5 MG, QD
     Route: 065
     Dates: start: 201902, end: 202001
  5. ATENOLOL [Concomitant]
     Active Substance: ATENOLOL
     Indication: Hypertension
     Dosage: 10 MG, QD (ONE TABLET)
     Route: 048
     Dates: start: 202011, end: 202011
  6. ENALAPRIL [Concomitant]
     Active Substance: ENALAPRIL
     Indication: Hypertension
     Dosage: 10 MG, Q12H
     Route: 048
     Dates: end: 202011
  7. HYDROCHLOROTHIAZIDE [Concomitant]
     Active Substance: HYDROCHLOROTHIAZIDE
     Indication: Hypertension
     Dosage: 25 MG, QD
     Route: 048
     Dates: end: 202107
  8. NPH INSULIN [Concomitant]
     Active Substance: INSULIN BEEF
     Indication: Diabetes mellitus
     Dosage: 40 U QD
     Route: 058
     Dates: end: 202107
  9. ATORVASTATIN [Concomitant]
     Active Substance: ATORVASTATIN
     Indication: Dyslipidaemia
     Dosage: 10 MG, QD
     Route: 048
     Dates: end: 202107
  10. EMPAGLIFLOZIN [Concomitant]
     Active Substance: EMPAGLIFLOZIN
     Indication: Diabetes mellitus
     Dosage: 25 MG, QD
     Route: 048
     Dates: end: 202107
  11. EMPAGLIFLOZIN [Concomitant]
     Active Substance: EMPAGLIFLOZIN
     Dosage: 5 MG, QD
     Route: 048
     Dates: end: 202107
  12. CLONAZEPAM [Concomitant]
     Active Substance: CLONAZEPAM
     Indication: Depression
     Dosage: 2 MG, QD (TABLET/ NIGHT)
     Route: 048
     Dates: end: 202107
  13. DAFLON [Concomitant]
     Indication: Peripheral venous disease
     Dosage: 100 MG, QD
     Route: 048
     Dates: end: 202011
  14. DAFLON [Concomitant]
     Dosage: 1000 MG, QD
     Route: 048
     Dates: end: 202011
  15. PREGABALIN [Concomitant]
     Active Substance: PREGABALIN
     Indication: Pain
     Dosage: 10 MG, QD
     Route: 048
     Dates: end: 202107
  16. PREGABALIN [Concomitant]
     Active Substance: PREGABALIN
     Dosage: 150 MG, QD
     Route: 065
     Dates: end: 202107
  17. MORPHINE [Concomitant]
     Active Substance: MORPHINE
     Indication: Pain
     Dosage: 10 MG, Q8H
     Route: 048
     Dates: start: 202003, end: 202107
  18. TRAZODONE HYDROCHLORIDE [Concomitant]
     Active Substance: TRAZODONE HYDROCHLORIDE
     Indication: Depression
     Dosage: 50 MG, QD
     Route: 048
     Dates: start: 202011, end: 202107
  19. CLONIDINE [Concomitant]
     Active Substance: CLONIDINE
     Indication: Hypertension
     Dosage: 0.01 MG, Q8H
     Route: 048
     Dates: start: 202011, end: 202107

REACTIONS (19)
  - Hormone receptor positive HER2 negative breast cancer [Fatal]
  - Metastases to bone [Fatal]
  - Metastases to liver [Fatal]
  - Tissue infiltration [Fatal]
  - Pathological fracture [Recovered/Resolved with Sequelae]
  - Bone erosion [Recovered/Resolved with Sequelae]
  - Bone lesion [Recovered/Resolved with Sequelae]
  - Osteolysis [Recovered/Resolved with Sequelae]
  - Thrombocytopenia [Unknown]
  - Carcinoembryonic antigen increased [Unknown]
  - Fatigue [Recovered/Resolved]
  - Diarrhoea [Recovered/Resolved]
  - Vomiting [Recovered/Resolved]
  - Nausea [Recovered/Resolved]
  - PIK3CA-activated mutation [Unknown]
  - General physical health deterioration [Unknown]
  - Product dose omission issue [Unknown]
  - Arthralgia [Not Recovered/Not Resolved]
  - Anaemia [Unknown]

NARRATIVE: CASE EVENT DATE: 20190101
